FAERS Safety Report 4618921-3 (Version None)
Quarter: 2005Q2

REPORT INFORMATION
  Report Type: 
  Country: None (occurrence: None)
  Receive Date: 20050310
  Receipt Date: 20030507
  Transmission Date: 20051028
  Serious: Yes (Hospitalization)
  Sender: FDA-Public Use
  Company Number: F03200300002

PATIENT
  Age: 44 Year
  Sex: Female

DRUGS (12)
  1. ELOXATIN [Suspect]
     Indication: COLON CANCER
     Dosage: 161 MG Q2W - INTRAVENOUS NOS
     Route: 042
     Dates: start: 20030205, end: 20030305
  2. ELOXATIN [Suspect]
     Indication: METASTASES TO OVARY
     Dosage: 161 MG Q2W - INTRAVENOUS NOS
     Route: 042
     Dates: start: 20030205, end: 20030305
  3. TEZACITABINE - SOLUTION UNIT DOSE: UNKNOWN [Suspect]
     Indication: COLON CANCER
     Dosage: 284 UNK Q2W - INTRAVENOUS NOS
     Route: 042
     Dates: start: 20030205, end: 20030305
  4. TEZACITABINE - SOLUTION UNIT DOSE: UNKNOWN [Suspect]
     Indication: METASTASES TO OVARY
     Dosage: 284 UNK Q2W - INTRAVENOUS NOS
     Route: 042
     Dates: start: 20030205, end: 20030305
  5. GRANISETRON [Concomitant]
  6. DEXAMETHASONE [Concomitant]
  7. PROCHLORPERAZINE EDISYLATE [Concomitant]
  8. LORAZEPAM [Concomitant]
  9. METHYLCELLULOSE [Concomitant]
  10. ESTRADIOL [Concomitant]
  11. FAMOTIDINE [Concomitant]
  12. PARACETAMOL [Concomitant]

REACTIONS (7)
  - ARTHRALGIA [None]
  - DYSPEPSIA [None]
  - HYPERSENSITIVITY [None]
  - NAUSEA [None]
  - PYREXIA [None]
  - RETCHING [None]
  - VOMITING [None]
